FAERS Safety Report 24814108 (Version 4)
Quarter: 2025Q2

REPORT INFORMATION
  Report Type: Spontaneous
  Country: US (occurrence: US)
  Receive Date: 20250107
  Receipt Date: 20250507
  Transmission Date: 20250717
  Serious: Yes (Death, Life-Threatening, Hospitalization, Disabling, Other)
  Sender: ARGENX BVBA
  Company Number: US-ARGENX-2025-ARGX-US000110

PATIENT

DRUGS (2)
  1. VYVGART [Suspect]
     Active Substance: EFGARTIGIMOD ALFA-FCAB
     Indication: Myasthenia gravis
     Route: 042
     Dates: start: 202312
  2. PREDNISONE [Concomitant]
     Active Substance: PREDNISONE
     Indication: Myasthenia gravis
     Dosage: 10 MG, DAILY
     Route: 065

REACTIONS (14)
  - Endocarditis staphylococcal [Fatal]
  - Cardiac valve abscess [Fatal]
  - Sepsis [Fatal]
  - Respiratory failure [Fatal]
  - Loss of consciousness [Unknown]
  - Peripheral swelling [Unknown]
  - Renal failure [Unknown]
  - Atrioventricular block [Unknown]
  - Pleural effusion [Unknown]
  - Cardiac failure [Unknown]
  - Pneumonia [Unknown]
  - Atelectasis [Unknown]
  - Myasthenia gravis [Unknown]
  - Pneumonia bacterial [Unknown]

NARRATIVE: CASE EVENT DATE: 20241201
